FAERS Safety Report 14533520 (Version 4)
Quarter: 2018Q1

REPORT INFORMATION
  Report Type: Spontaneous
  Country: US (occurrence: US)
  Receive Date: 20180215
  Receipt Date: 20180223
  Transmission Date: 20180509
  Serious: No
  Sender: FDA-Public Use
  Company Number: US-BIOGEN-2018BI00523196

PATIENT
  Sex: Female

DRUGS (1)
  1. TYSABRI [Suspect]
     Active Substance: NATALIZUMAB
     Indication: MULTIPLE SCLEROSIS
     Route: 065
     Dates: start: 20080804, end: 20140806

REACTIONS (6)
  - Drug ineffective [Unknown]
  - Loss of control of legs [Not Recovered/Not Resolved]
  - Multiple sclerosis [Unknown]
  - Speech disorder [Not Recovered/Not Resolved]
  - Dementia [Not Recovered/Not Resolved]
  - Tremor [Not Recovered/Not Resolved]
